FAERS Safety Report 5959522-4 (Version None)
Quarter: 2008Q4

REPORT INFORMATION
  Report Type: 
  Country: None (occurrence: None)
  Receive Date: 20081117
  Receipt Date: 20081104
  Transmission Date: 20090506
  Serious: Yes (Hospitalization)
  Sender: FDA-Public Use
  Company Number: GXKR2008JP10225

PATIENT
  Age: 73 Year
  Sex: Male

DRUGS (2)
  1. MEXILETINE HYDROCHLORIDE [Suspect]
     Indication: ARRHYTHMIA
     Dosage: UNK, ORAL
     Route: 048
     Dates: start: 20051001, end: 20051207
  2. NILVADIPINE (NILVADIPINE) [Concomitant]

REACTIONS (13)
  - BLOOD UREA INCREASED [None]
  - DRUG RASH WITH EOSINOPHILIA AND SYSTEMIC SYMPTOMS [None]
  - EOSINOPHILIA [None]
  - FACE OEDEMA [None]
  - GENERALISED ERYTHEMA [None]
  - HEPATIC FUNCTION ABNORMAL [None]
  - HUMAN HERPESVIRUS 6 INFECTION [None]
  - LEUKOCYTOSIS [None]
  - PRURITUS [None]
  - PYREXIA [None]
  - RASH [None]
  - SKIN EXFOLIATION [None]
  - VIRUS SEROLOGY TEST POSITIVE [None]
